FAERS Safety Report 4464133-6 (Version None)
Quarter: 2004Q4

REPORT INFORMATION
  Report Type: 
  Country: None (occurrence: None)
  Receive Date: 20041001
  Receipt Date: 20040927
  Transmission Date: 20050328
  Serious: Yes (Hospitalization)
  Sender: FDA-Public Use
  Company Number: US-JNJFOC-20040606770

PATIENT
  Age: 55 Year
  Sex: Male
  Weight: 62.6 kg

DRUGS (6)
  1. REMICADE [Suspect]
     Indication: CROHN'S DISEASE
     Dosage: TOTAL OF 10 INFUSIONS
     Route: 042
  2. IMURAN [Concomitant]
  3. ENTOCORT EC [Concomitant]
  4. TYLENOL W/ CODEINE NO. 3 [Concomitant]
  5. TYLENOL W/ CODEINE NO. 3 [Concomitant]
  6. PREDNISONE [Concomitant]

REACTIONS (16)
  - ANOREXIA [None]
  - ASPERGILLOSIS [None]
  - ATELECTASIS [None]
  - BONE DISORDER [None]
  - BRONCHIOLITIS [None]
  - CHOLELITHIASIS [None]
  - EMPHYSEMA [None]
  - HYPERHIDROSIS [None]
  - IRRITABLE BOWEL SYNDROME [None]
  - LUNG NEOPLASM [None]
  - MYALGIA [None]
  - PLEURISY [None]
  - PNEUMONIA [None]
  - PYREXIA [None]
  - SINUS CONGESTION [None]
  - WEIGHT DECREASED [None]
